FAERS Safety Report 5101706-1 (Version None)
Quarter: 2006Q3

REPORT INFORMATION
  Report Type: 
  Country: None (occurrence: None)
  Receive Date: 20060731
  Receipt Date: 20060511
  Transmission Date: 20061208
  Serious: No
  Sender: FDA-Public Use
  Company Number: 2006PV014043

PATIENT
  Age: 62 Year
  Sex: Male
  Weight: 127.0072 kg

DRUGS (6)
  1. BYETTA [Suspect]
     Indication: DIABETES MELLITUS NON-INSULIN-DEPENDENT
     Dosage: SEE IMAGE
     Route: 058
     Dates: start: 20060508
  2. METFORMIN HCL [Concomitant]
  3. AVANDIA [Concomitant]
  4. AVANDAMET [Concomitant]
  5. LANTUS [Concomitant]
  6. NOVOLOG [Concomitant]

REACTIONS (2)
  - BLOOD GLUCOSE INCREASED [None]
  - DRUG INEFFECTIVE [None]
